FAERS Safety Report 4705762-1 (Version None)
Quarter: 2005Q3

REPORT INFORMATION
  Report Type: 
  Country: None (occurrence: None)
  Receive Date: 20050701
  Receipt Date: 20050218
  Transmission Date: 20060218
  Serious: Yes (Other)
  Sender: FDA-Public Use
  Company Number: US-MERCK-0502USA02888

PATIENT
  Age: 45 Year
  Sex: Male
  Weight: 114 kg

DRUGS (9)
  1. VIOXX [Suspect]
     Route: 048
     Dates: start: 20010301, end: 20040901
  2. VIOXX [Suspect]
     Route: 048
     Dates: start: 20030826
  3. PLAVIX [Concomitant]
     Route: 065
  4. TOPROL-XL [Concomitant]
     Route: 065
  5. FOLIC ACID [Concomitant]
     Route: 065
  6. CELEXA [Concomitant]
     Route: 065
  7. ZOCOR [Concomitant]
     Route: 048
  8. LISINOPRIL [Concomitant]
     Route: 065
  9. ASPIRIN [Concomitant]
     Route: 065

REACTIONS (5)
  - BACK DISORDER [None]
  - CEREBROVASCULAR ACCIDENT [None]
  - RECTAL HAEMORRHAGE [None]
  - SINUS DISORDER [None]
  - TRANSIENT ISCHAEMIC ATTACK [None]
